FAERS Safety Report 24576791 (Version 2)
Quarter: 2024Q4

REPORT INFORMATION
  Report Type: Spontaneous
  Country: US (occurrence: US)
  Receive Date: 20241104
  Receipt Date: 20241107
  Transmission Date: 20250114
  Serious: No
  Sender: BRISTOL-MYERS SQUIBB COMPANY
  Company Number: US-BRISTOL-MYERS SQUIBB COMPANY-2024-171983

PATIENT
  Age: 67 Year
  Sex: Male

DRUGS (2)
  1. KRAZATI [Suspect]
     Active Substance: ADAGRASIB
     Indication: Product used for unknown indication
  2. KRAZATI [Suspect]
     Active Substance: ADAGRASIB

REACTIONS (2)
  - Diarrhoea [Unknown]
  - Decreased appetite [Unknown]
